FAERS Safety Report 25930630 (Version 2)
Quarter: 2025Q4

REPORT INFORMATION
  Report Type: Spontaneous
  Country: EU (occurrence: EU)
  Receive Date: 20251016
  Receipt Date: 20251103
  Transmission Date: 20260117
  Serious: Yes (Hospitalization)
  Sender: ELI LILLY AND COMPANY
  Company Number: EU-ELI_LILLY_AND_COMPANY-RO202510011497

PATIENT
  Age: 48 Year
  Sex: Male

DRUGS (2)
  1. TALTZ [Suspect]
     Active Substance: IXEKIZUMAB
     Indication: Psoriasis
     Dosage: 80 MG, OTHER (EVERY TWO WEEKS) (INDUCTION DOSE)
     Route: 058
  2. TALTZ [Suspect]
     Active Substance: IXEKIZUMAB
     Dosage: 80 MG, OTHER (EVERY FOUR WEEKS)
     Route: 058
     Dates: end: 20251008

REACTIONS (3)
  - Eosinophilic pleural effusion [Recovering/Resolving]
  - Respiratory failure [Recovering/Resolving]
  - Pleurisy [Recovering/Resolving]

NARRATIVE: CASE EVENT DATE: 20250910
